FAERS Safety Report 6026601-5 (Version None)
Quarter: 2008Q4

REPORT INFORMATION
  Report Type: 
  Country: None (occurrence: None)
  Receive Date: 20081231
  Receipt Date: 20081219
  Transmission Date: 20090506
  Serious: Yes (Other)
  Sender: FDA-Public Use
  Company Number: 110046

PATIENT
  Age: 58 Year
  Sex: Female

DRUGS (3)
  1. NAPROXEN SODIUM AND PSEUDOEPHEDRINE HYDROCHLORIDE [Suspect]
     Indication: NASOPHARYNGITIS
     Dosage: 2DF/ QD/ ORAL
     Route: 048
     Dates: start: 20081205, end: 20081213
  2. AVELOX [Concomitant]
  3. MULTI-VITAMIN [Concomitant]

REACTIONS (1)
  - ORTHOSTATIC HYPERTENSION [None]
